FAERS Safety Report 10394127 (Version 1)
Quarter: 2014Q3

REPORT INFORMATION
  Report Type: Spontaneous
  Country: US (occurrence: None)
  Receive Date: 20140818
  Receipt Date: 20140818
  Transmission Date: 20150326
  Serious: Yes (Life-Threatening)
  Sender: FDA-Public Use
  Company Number: NSR_01601_2014

PATIENT
  Age: 17 Year
  Sex: Male
  Weight: 57 kg

DRUGS (2)
  1. GENERAL ANESTHESIA [Concomitant]
     Active Substance: UNSPECIFIED INGREDIENT
  2. BACLOFEN. [Suspect]
     Active Substance: BACLOFEN
     Indication: INTRATHECAL PUMP INSERTION
     Dosage: NOT THE PRESCRIBE AMOUNT, 15% BELOW THE PREVIOUS DOSE
     Route: 037

REACTIONS (18)
  - Hyporeflexia [None]
  - Unresponsive to stimuli [None]
  - Accidental overdose [None]
  - Bradypnoea [None]
  - Sedation [None]
  - Depressed level of consciousness [None]
  - Muscle spasticity [None]
  - Somnolence [None]
  - Post procedural complication [None]
  - Bradycardia [None]
  - Miosis [None]
  - Hypotension [None]
  - Coma [None]
  - Respiratory acidosis [None]
  - Toxicity to various agents [None]
  - Cough [None]
  - Dystonia [None]
  - Respiratory depression [None]
